FAERS Safety Report 9643962 (Version 2)
Quarter: 2013Q4

REPORT INFORMATION
  Report Type: Spontaneous
  Country: US (occurrence: US)
  Receive Date: 20131024
  Receipt Date: 20131104
  Transmission Date: 20140711
  Serious: Yes (Hospitalization, Other)
  Sender: FDA-Public Use
  Company Number: US-PFIZER INC-2013303499

PATIENT
  Sex: Female

DRUGS (1)
  1. LYRICA [Suspect]
     Dosage: UNK

REACTIONS (10)
  - Diabetes mellitus [Unknown]
  - Malaise [Unknown]
  - Gait disturbance [Unknown]
  - Diarrhoea [Unknown]
  - Insomnia [Unknown]
  - Pyrexia [Unknown]
  - Mood swings [Unknown]
  - Arthralgia [Unknown]
  - Headache [Unknown]
  - Pain in extremity [Unknown]
